FAERS Safety Report 16790667 (Version 1)
Quarter: 2019Q3

REPORT INFORMATION
  Report Type: Spontaneous
  Country: US (occurrence: US)
  Receive Date: 20190910
  Receipt Date: 20190910
  Transmission Date: 20191005
  Serious: No
  Sender: FDA-Public Use
  Company Number: US-PFIZER INC-2019388202

PATIENT
  Age: 57 Year
  Sex: Male
  Weight: 112.4 kg

DRUGS (3)
  1. NYSTATIN. [Suspect]
     Active Substance: NYSTATIN
     Indication: STOMATITIS
     Dosage: 5 ML, 4X/DAY
     Dates: start: 20190814
  2. DIFLUCAN [Suspect]
     Active Substance: FLUCONAZOLE
     Indication: STOMATITIS
     Dosage: 200 MG, 1X/DAY
     Dates: start: 20190904
  3. ACYCLOVIR [ACICLOVIR] [Suspect]
     Active Substance: ACYCLOVIR
     Indication: STOMATITIS
     Dosage: 400 MG, 2X/DAY
     Dates: start: 20190814

REACTIONS (2)
  - Drug ineffective for unapproved indication [Unknown]
  - Off label use [Unknown]
